FAERS Safety Report 8806802 (Version 2)
Quarter: 2012Q4

REPORT INFORMATION
  Report Type: 
  Country: BR (occurrence: BR)
  Receive Date: 20120925
  Receipt Date: 20121002
  Transmission Date: 20130627
  Serious: Yes (Disabling)
  Sender: FDA-Public Use
  Company Number: BR-BAYER-2012-099887

PATIENT
  Sex: Female

DRUGS (7)
  1. BETAFERON [Suspect]
     Indication: MULTIPLE SCLEROSIS
     Dosage: 0.25 ml, QOD
     Route: 058
     Dates: start: 20120919
  2. IBUPROFEN [Concomitant]
     Indication: PYREXIA
     Dosage: 1 DF, PRN
     Route: 048
  3. IBUPROFEN [Concomitant]
     Indication: PAIN
  4. PARACETAMOL [Concomitant]
     Indication: PYREXIA
     Dosage: 1 DF, PRN
  5. PARACETAMOL [Concomitant]
     Indication: PAIN
  6. PAMELOR [Concomitant]
     Indication: DEPRESSION
     Dosage: 1 DF, QD
     Route: 048
     Dates: start: 2012
  7. PAMELOR [Concomitant]
     Indication: SLEEP DISORDER THERAPY

REACTIONS (3)
  - Muscular weakness [Recovered/Resolved]
  - Coordination abnormal [Recovered/Resolved]
  - Mobility decreased [Recovered/Resolved]
